FAERS Safety Report 4849468-7 (Version None)
Quarter: 2005Q4

REPORT INFORMATION
  Report Type: 
  Country: None (occurrence: None)
  Receive Date: 20051207
  Receipt Date: 20051124
  Transmission Date: 20060501
  Serious: Yes (Hospitalization)
  Sender: FDA-Public Use
  Company Number: 2005161937

PATIENT
  Sex: Male

DRUGS (1)
  1. SOMAVERT [Suspect]
     Indication: ACROMEGALY
     Dosage: SUBCUTANEOUS
     Route: 058

REACTIONS (2)
  - DIZZINESS [None]
  - VERTIGO [None]
